FAERS Safety Report 7510933-5 (Version None)
Quarter: 2011Q2

REPORT INFORMATION
  Report Type: 
  Country: None (occurrence: None)
  Receive Date: 20110531
  Receipt Date: 20091105
  Transmission Date: 20111010
  Serious: No
  Sender: FDA-Public Use
  Company Number: 2009BI036356

PATIENT
  Sex: Female

DRUGS (1)
  1. TYSABRI [Suspect]
     Indication: MULTIPLE SCLEROSIS
     Route: 042
     Dates: start: 20091102

REACTIONS (6)
  - INFLUENZA LIKE ILLNESS [None]
  - AMNESIA [None]
  - FATIGUE [None]
  - PAIN [None]
  - BLADDER PAIN [None]
  - STRESS [None]
